FAERS Safety Report 8801419 (Version 1)
Quarter: 2012Q4

REPORT INFORMATION
  Report Type: 
  Country: US (occurrence: US)
  Receive Date: 20120921
  Receipt Date: 20120921
  Transmission Date: 20130627
  Serious: Yes (Other)
  Sender: FDA-Public Use
  Company Number: US-JNJFOC-20120906791

PATIENT
  Sex: Female

DRUGS (1)
  1. STELARA [Suspect]
     Indication: PSORIASIS
     Dosage: patient had received a total of 3 doses and continued with 2 more doses
     Route: 058
     Dates: start: 201201

REACTIONS (3)
  - Skin necrosis [Unknown]
  - Nodule [Unknown]
  - Psoriasis [Unknown]
